FAERS Safety Report 24014442 (Version 1)
Quarter: 2024Q2

REPORT INFORMATION
  Report Type: Spontaneous
  Country: US (occurrence: US)
  Receive Date: 20240626
  Receipt Date: 20240626
  Transmission Date: 20240716
  Serious: Yes (Hospitalization, Other)
  Sender: FDA-Public Use
  Company Number: US-SUN PHARMACEUTICAL INDUSTRIES LTD-2024R1-452640

PATIENT
  Age: 55 Year
  Sex: Female

DRUGS (2)
  1. RANOLAZINE [Suspect]
     Active Substance: RANOLAZINE
     Indication: Chest pain
     Dosage: UNK
     Route: 065
  2. RANOLAZINE [Suspect]
     Active Substance: RANOLAZINE
     Indication: Angina pectoris

REACTIONS (1)
  - Condition aggravated [Unknown]
